APPROVED DRUG PRODUCT: NIZATIDINE
Active Ingredient: NIZATIDINE
Strength: 300MG
Dosage Form/Route: CAPSULE;ORAL
Application: A076383 | Product #002
Applicant: APOTEX INC
Approved: Jan 23, 2003 | RLD: No | RS: No | Type: DISCN